FAERS Safety Report 16460498 (Version 1)
Quarter: 2019Q2

REPORT INFORMATION
  Report Type: Spontaneous
  Country: US (occurrence: US)
  Receive Date: 20190620
  Receipt Date: 20190620
  Transmission Date: 20190711
  Serious: No
  Sender: FDA-Public Use
  Company Number: US-SA-2019SA164560

PATIENT
  Age: 49 Year
  Sex: Female

DRUGS (1)
  1. DUPIXENT [Suspect]
     Active Substance: DUPILUMAB
     Dosage: UNK
     Route: 058
     Dates: start: 201902

REACTIONS (4)
  - Pain in extremity [Unknown]
  - Product dose omission [Unknown]
  - Arthralgia [Unknown]
  - Product storage error [Unknown]

NARRATIVE: CASE EVENT DATE: 2019
